FAERS Safety Report 18015553 (Version 1)
Quarter: 2020Q3

REPORT INFORMATION
  Report Type: Report from Study
  Country: US (occurrence: US)
  Receive Date: 20200713
  Receipt Date: 20200713
  Transmission Date: 20201103
  Serious: Yes (Hospitalization)
  Sender: FDA-Public Use
  Company Number: US-JNJFOC-20200704024

PATIENT
  Sex: Male
  Weight: 114.8 kg

DRUGS (3)
  1. ERDAFITINIB. [Suspect]
     Active Substance: ERDAFITINIB
     Indication: CHOLANGIOCARCINOMA
     Route: 048
     Dates: start: 20190412, end: 20190501
  2. AMITRIPTYLINE [Concomitant]
     Active Substance: AMITRIPTYLINE
     Route: 065
  3. GABAPENTIN. [Concomitant]
     Active Substance: GABAPENTIN
     Route: 065

REACTIONS (2)
  - Cellulitis [Unknown]
  - Abscess [Unknown]

NARRATIVE: CASE EVENT DATE: 20190501
